FAERS Safety Report 7763955 (Version 2)
Quarter: 2015Q4

REPORT INFORMATION
  Report Type: Spontaneous
  Country: JP (occurrence: JP)
  Receive Date: 20110118
  Receipt Date: 20151203
  Transmission Date: 20160305
  Serious: No
  Sender: FDA-Public Use
  Company Number: PHHY2010JP74271

PATIENT
  Sex: Female

DRUGS (1)
  1. FEMARA [Suspect]
     Active Substance: LETROZOLE
     Indication: OVULATION INDUCTION
     Route: 048

REACTIONS (2)
  - Product use issue [Unknown]
  - Maternal exposure before pregnancy [Unknown]
